FAERS Safety Report 18905024 (Version 1)
Quarter: 2021Q1

REPORT INFORMATION
  Report Type: Spontaneous
  Country: DE (occurrence: DE)
  Receive Date: 20210217
  Receipt Date: 20210217
  Transmission Date: 20210420
  Serious: Yes (Other)
  Sender: FDA-Public Use
  Company Number: DE-TEVA-2021-DE-1879985

PATIENT
  Age: 1 Day
  Sex: Male
  Weight: 2.59 kg

DRUGS (4)
  1. PARTUSISTEN [Concomitant]
     Active Substance: FENOTEROL
     Indication: PREMATURE LABOUR
     Route: 064
  2. MYKOSERT [Concomitant]
     Active Substance: SERTACONAZOLE NITRATE
     Indication: FUNGAL SKIN INFECTION
     Dosage: BETWEEN THE TOES
     Route: 064
  3. NIFEDIPIN [Suspect]
     Active Substance: NIFEDIPINE
     Indication: THREATENED LABOUR
     Route: 064
     Dates: start: 20200520, end: 20200703
  4. INFLUENZA VACCINE [Concomitant]
     Active Substance: INFLUENZA VIRUS VACCINE
     Indication: IMMUNISATION
     Route: 064
     Dates: start: 20200117, end: 20200117

REACTIONS (4)
  - Caput succedaneum [Unknown]
  - Anaemia neonatal [Recovered/Resolved]
  - Foetal exposure during pregnancy [Unknown]
  - Hyperbilirubinaemia neonatal [Recovered/Resolved]

NARRATIVE: CASE EVENT DATE: 2020
